FAERS Safety Report 25305220 (Version 3)
Quarter: 2025Q2

REPORT INFORMATION
  Report Type: Spontaneous
  Country: US (occurrence: US)
  Receive Date: 20250513
  Receipt Date: 20250610
  Transmission Date: 20250716
  Serious: No
  Sender: TORRENT PHARMA INC.
  Company Number: US-TORRENT-00014334

PATIENT
  Age: 58 Year
  Sex: Female

DRUGS (1)
  1. VENXXIVA [Suspect]
     Active Substance: TIOPRONIN
     Indication: Cystinuria
     Dosage: 900 MG/DAY
     Route: 048
     Dates: start: 20240827, end: 20250423

REACTIONS (2)
  - Cystinuria [Recovered/Resolved]
  - Diarrhoea [Recovered/Resolved]

NARRATIVE: CASE EVENT DATE: 20240901
